FAERS Safety Report 9825121 (Version 1)
Quarter: 2013Q4

REPORT INFORMATION
  Report Type: Spontaneous
  Country: US (occurrence: None)
  Receive Date: 20131028
  Receipt Date: 20131028
  Transmission Date: 20140711
  Serious: Yes (Other)
  Sender: FDA-Public Use
  Company Number: 2013US001112

PATIENT
  Age: 65 Year
  Sex: Female
  Weight: 90.7 kg

DRUGS (9)
  1. ICLUSIG [Suspect]
     Indication: CHRONIC MYELOID LEUKAEMIA
     Dosage: 30 MG, QD, ORAL
     Route: 048
     Dates: start: 20120901
  2. THYROXIN (LEVOTHYROXINE SODIUM) [Concomitant]
  3. LOPRESSOR (METOPROLOL TARTRATE) [Concomitant]
  4. LISINOPRIL (LISINOPRIL) [Concomitant]
  5. CELEXA (CITALOPRAM HYDROBROMIDE) [Concomitant]
  6. LASIX (FUROSEMIDE) [Concomitant]
  7. LIPITOR (ATORVASTATIN CALCIUM) [Concomitant]
  8. FISH OIL (FISH OIL) [Concomitant]
  9. MULTIVITAMIN (VITAMINS NOS) [Concomitant]

REACTIONS (1)
  - Alopecia [None]
